FAERS Safety Report 9949797 (Version 1)
Quarter: 2014Q1

REPORT INFORMATION
  Report Type: Report from Study
  Country: US (occurrence: US)
  Receive Date: 20140304
  Receipt Date: 20140304
  Transmission Date: 20141002
  Serious: No
  Sender: FDA-Public Use
  Company Number: US-ABBVIE-13P-163-1070243-00

PATIENT
  Age: 19 Year
  Sex: Female
  Weight: 51.76 kg

DRUGS (5)
  1. HUMIRA [Suspect]
     Indication: ANKYLOSING SPONDYLITIS
     Dates: start: 201208
  2. TRINESSA [Concomitant]
     Indication: MENSTRUAL DISORDER
     Dosage: DAILY
  3. NAPROSYN [Concomitant]
     Indication: PAIN
  4. NAPROXEN [Concomitant]
     Indication: MENSTRUAL DISORDER
  5. NAPROXEN [Concomitant]
     Indication: PAIN

REACTIONS (4)
  - Device malfunction [Not Recovered/Not Resolved]
  - Injection site mass [Unknown]
  - Arthralgia [Not Recovered/Not Resolved]
  - Incorrect dose administered [Not Recovered/Not Resolved]
